FAERS Safety Report 6108006-1 (Version None)
Quarter: 2009Q1

REPORT INFORMATION
  Report Type: 
  Country: None (occurrence: None)
  Receive Date: 20090304
  Receipt Date: 20081217
  Transmission Date: 20090719
  Serious: Yes (Life-Threatening, Hospitalization)
  Sender: FDA-Public Use
  Company Number: US-002284

PATIENT
  Age: 68 Year
  Sex: Male
  Weight: 107 kg

DRUGS (9)
  1. ISOVUE-370 [Suspect]
     Indication: ACUTE MYOCARDIAL INFARCTION
     Dosage: 100ML QD INTRAVENOUS
     Route: 042
     Dates: start: 20081215, end: 20081215
  2. ISOVUE-370 [Suspect]
     Indication: CAROTID ARTERY OCCLUSION
     Dosage: 100ML QD INTRAVENOUS
     Route: 042
     Dates: start: 20081215, end: 20081215
  3. ISOVUE-370 [Suspect]
     Indication: CATHETERISATION CARDIAC
     Dosage: 100ML QD INTRAVENOUS
     Route: 042
     Dates: start: 20081215, end: 20081215
  4. HEPARIN [Suspect]
     Indication: ANTICOAGULANT THERAPY
     Dosage: 3000IU UNKNOWN, 3000IU UNKNOWN
     Dates: start: 20081215, end: 20081215
  5. HEPARIN [Suspect]
     Indication: ANTICOAGULANT THERAPY
     Dosage: 3000IU UNKNOWN, 3000IU UNKNOWN
     Dates: start: 20081215, end: 20081215
  6. MORPHINE [Concomitant]
  7. NITROGLYCERIN [Concomitant]
  8. ASPIRIN [Concomitant]
  9. BENADRYL [Concomitant]

REACTIONS (9)
  - BLOOD PRESSURE DECREASED [None]
  - COUGH [None]
  - DRY THROAT [None]
  - DYSPNOEA [None]
  - OROPHARYNGEAL PAIN [None]
  - PHARYNGEAL OEDEMA [None]
  - RESPIRATORY DISTRESS [None]
  - THROAT TIGHTNESS [None]
  - VASCULAR PSEUDOANEURYSM [None]
